FAERS Safety Report 16456256 (Version 1)
Quarter: 2019Q2

REPORT INFORMATION
  Report Type: Spontaneous
  Country: US (occurrence: US)
  Receive Date: 20190620
  Receipt Date: 20190620
  Transmission Date: 20190711
  Serious: Yes (Hospitalization, Other)
  Sender: FDA-Public Use
  Company Number: US-TEVA-2019-US-1064302

PATIENT
  Age: 63 Year
  Sex: Male

DRUGS (2)
  1. LUPREOLIDE [Concomitant]
     Indication: PROSTATE CANCER METASTATIC
     Route: 065
  2. DOCETAXEL. [Suspect]
     Active Substance: DOCETAXEL
     Indication: PROSTATE CANCER METASTATIC
     Dosage: RECEIVED 2 CYCLES OF DOCETAXEL 75 MG/M 2
     Route: 065

REACTIONS (1)
  - Stevens-Johnson syndrome [Recovering/Resolving]
